FAERS Safety Report 20633261 (Version 1)
Quarter: 2022Q1

REPORT INFORMATION
  Report Type: Spontaneous
  Country: DE (occurrence: DE)
  Receive Date: 20220324
  Receipt Date: 20220324
  Transmission Date: 20220423
  Serious: Yes (Other)
  Sender: FDA-Public Use
  Company Number: DE-TEVA-2022-DE-2018130

PATIENT
  Age: 49 Year
  Sex: Female

DRUGS (1)
  1. AJOVY [Suspect]
     Active Substance: FREMANEZUMAB-VFRM
     Indication: Migraine
     Route: 058

REACTIONS (3)
  - Chest pain [Not Recovered/Not Resolved]
  - Breast cyst [Not Recovered/Not Resolved]
  - Chest discomfort [Not Recovered/Not Resolved]
